FAERS Safety Report 13664282 (Version 4)
Quarter: 2017Q3

REPORT INFORMATION
  Report Type: Spontaneous
  Country: CA (occurrence: CA)
  Receive Date: 20170619
  Receipt Date: 20170821
  Transmission Date: 20171127
  Serious: Yes (Other)
  Sender: FDA-Public Use
  Company Number: CA-CELLTRION HEALTHCARE HUNGARY KFT-2017CA007568

PATIENT

DRUGS (1)
  1. INFLECTRA [Suspect]
     Active Substance: INFLIXIMAB-DYYB
     Indication: COLITIS ULCERATIVE
     Dosage: 600 MG(10MG/KG) EVERY 6 WEEKS AND THEN EVERY 4 WEEKS
     Route: 042
     Dates: start: 20170505, end: 20170717

REACTIONS (7)
  - Pain [Unknown]
  - Diarrhoea [Unknown]
  - Prescribed overdose [Unknown]
  - Drug ineffective [Unknown]
  - Malaise [Not Recovered/Not Resolved]
  - Blood pressure fluctuation [Unknown]
  - Melaena [Unknown]

NARRATIVE: CASE EVENT DATE: 2017
